FAERS Safety Report 4752542-7 (Version None)
Quarter: 2005Q3

REPORT INFORMATION
  Report Type: 
  Country: None (occurrence: None)
  Receive Date: 20050823
  Receipt Date: 20050803
  Transmission Date: 20060218
  Serious: Yes (Death, Hospitalization)
  Sender: FDA-Public Use
  Company Number: EWC050845316

PATIENT
  Age: 68 Year
  Sex: Female

DRUGS (5)
  1. ZYPREXA [Suspect]
     Indication: CYCLOTHYMIC DISORDER
     Dosage: 10 MG DAY
     Dates: start: 20000101, end: 20050721
  2. EFFEXOR [Concomitant]
  3. CLOMIPRAMINE HCL [Concomitant]
  4. LEVOSULPIRIDE [Concomitant]
  5. LEXOTAN (BROMAZEPAM) [Concomitant]

REACTIONS (1)
  - HYPERTHERMIA MALIGNANT [None]
